FAERS Safety Report 4525915-5 (Version None)
Quarter: 2004Q4

REPORT INFORMATION
  Report Type: 
  Country: None (occurrence: None)
  Receive Date: 20041124
  Receipt Date: 20040327
  Transmission Date: 20050328
  Serious: Yes (Other)
  Sender: FDA-Public Use
  Company Number: 2004015161

PATIENT
  Age: 47 Year
  Sex: Female

DRUGS (2)
  1. TIKOSYN [Suspect]
     Indication: ARRHYTHMIA
     Dosage: BID
     Dates: start: 20030601, end: 20031001
  2. METOPROLOL TARTRATE [Concomitant]

REACTIONS (2)
  - ARRHYTHMIA [None]
  - SURGERY [None]
